FAERS Safety Report 9357414 (Version 1)
Quarter: 2013Q2

REPORT INFORMATION
  Report Type: Spontaneous
  Country: BR (occurrence: BR)
  Receive Date: 20130620
  Receipt Date: 20130620
  Transmission Date: 20140414
  Serious: Yes (Other)
  Sender: FDA-Public Use
  Company Number: BR-JNJFOC-20130609340

PATIENT
  Sex: Female

DRUGS (1)
  1. NICORETTE ICY MINT GUM 2MG [Suspect]
     Indication: PRODUCT USED FOR UNKNOWN INDICATION
     Dosage: 3 TO 6 GUMS PER DAY
     Route: 048
     Dates: start: 2007, end: 201305

REACTIONS (2)
  - Dependence [Recovered/Resolved]
  - Intentional drug misuse [Unknown]
